FAERS Safety Report 6124607-9 (Version None)
Quarter: 2009Q1

REPORT INFORMATION
  Report Type: 
  Country: None (occurrence: None)
  Receive Date: 20090319
  Receipt Date: 20090314
  Transmission Date: 20090719
  Serious: Yes (Hospitalization)
  Sender: FDA-Public Use
  Company Number: A0773331A

PATIENT
  Sex: Female
  Weight: 65 kg

DRUGS (1)
  1. LAPATINIB [Suspect]
     Indication: BREAST CANCER
     Dosage: 1500MG PER DAY
     Route: 048
     Dates: start: 20070814

REACTIONS (4)
  - CHILLS [None]
  - DYSURIA [None]
  - PYREXIA [None]
  - URINARY TRACT INFECTION [None]
